FAERS Safety Report 13233399 (Version 1)
Quarter: 2017Q1

REPORT INFORMATION
  Report Type: Spontaneous
  Country: US (occurrence: US)
  Receive Date: 20170214
  Receipt Date: 20170214
  Transmission Date: 20170428
  Serious: Yes (Hospitalization)
  Sender: FDA-Public Use
  Company Number: None

PATIENT
  Age: 55 Year
  Sex: Female
  Weight: 76 kg

DRUGS (7)
  1. OLANZAPINE. [Concomitant]
     Active Substance: OLANZAPINE
  2. PRAVASTATIN. [Concomitant]
     Active Substance: PRAVASTATIN
  3. CAPECITABINE. [Suspect]
     Active Substance: CAPECITABINE
     Indication: CHEMOTHERAPY
     Dosage: ?          OTHER FREQUENCY:Q12H;?
     Route: 048
     Dates: start: 20170118, end: 20170130
  4. BISOPROLOL-HCTZ [Concomitant]
  5. ASPIRIN. [Concomitant]
     Active Substance: ASPIRIN
  6. ONDANSETRON [Concomitant]
     Active Substance: ONDANSETRON
  7. CALCIUM CARBONATE-VITAMIN D3 [Concomitant]

REACTIONS (10)
  - Vomiting [None]
  - Blood creatinine increased [None]
  - Diarrhoea [None]
  - Blood potassium decreased [None]
  - Neuropathy peripheral [None]
  - Blood magnesium decreased [None]
  - Nausea [None]
  - Palmar-plantar erythrodysaesthesia syndrome [None]
  - Mucosal inflammation [None]
  - Blood sodium decreased [None]

NARRATIVE: CASE EVENT DATE: 20170128
